FAERS Safety Report 8275815-2 (Version None)
Quarter: 2012Q2

REPORT INFORMATION
  Report Type: 
  Country: None (occurrence: None)
  Receive Date: 20120410
  Receipt Date: 20120410
  Transmission Date: 20120825
  Serious: No
  Sender: FDA-Public Use
  Company Number: None

PATIENT

DRUGS (1)
  1. ATORVASTATIN [Suspect]
     Indication: DYSLIPIDAEMIA
     Dosage: 40MG QD PO
     Route: 048
     Dates: start: 20111222

REACTIONS (2)
  - LOW DENSITY LIPOPROTEIN INCREASED [None]
  - PRODUCT SUBSTITUTION ISSUE [None]
